FAERS Safety Report 20367354 (Version 10)
Quarter: 2022Q3

REPORT INFORMATION
  Report Type: Report from Study
  Country: US (occurrence: US)
  Receive Date: 20220124
  Receipt Date: 20220718
  Transmission Date: 20221027
  Serious: Yes (Other)
  Sender: FDA-Public Use
  Company Number: US-NOVARTISTESTPH-NVSC2022US014076

PATIENT
  Age: 75 Year
  Sex: Male

DRUGS (2)
  1. ENTRESTO [Suspect]
     Active Substance: SACUBITRIL\VALSARTAN
     Indication: Product used for unknown indication
     Dosage: UNK, BID
     Route: 048
  2. ENTRESTO [Suspect]
     Active Substance: SACUBITRIL\VALSARTAN
     Route: 048

REACTIONS (14)
  - Carpal tunnel syndrome [Unknown]
  - Neuropathy peripheral [Unknown]
  - Erectile dysfunction [Recovering/Resolving]
  - Sleep disorder [Unknown]
  - Gait disturbance [Unknown]
  - Myalgia [Unknown]
  - Hypokinesia [Unknown]
  - Bone pain [Unknown]
  - Diplopia [Unknown]
  - COVID-19 [Unknown]
  - Sleep deficit [Unknown]
  - Fatigue [Unknown]
  - Arthralgia [Unknown]
  - Arthropod bite [Unknown]

NARRATIVE: CASE EVENT DATE: 20220125
